FAERS Safety Report 4528915-4 (Version None)
Quarter: 2004Q4

REPORT INFORMATION
  Report Type: 
  Country: None (occurrence: None)
  Receive Date: 20041214
  Receipt Date: 20041201
  Transmission Date: 20050328
  Serious: Yes (Other)
  Sender: FDA-Public Use
  Company Number: 2004104252

PATIENT
  Age: 40 Year
  Sex: Female
  Weight: 81.6475 kg

DRUGS (5)
  1. NEURONTIN [Suspect]
     Indication: CONVULSION
     Dosage: 300 MG (300 MG, 1 IN 1 D), ORAL
     Route: 048
     Dates: start: 20020101
  2. NEURONTIN [Suspect]
     Indication: PAIN
     Dosage: 300 MG (300 MG, 1 IN 1 D), ORAL
     Route: 048
     Dates: start: 20020101
  3. METHADONE HCL [Suspect]
     Indication: PAIN
     Dosage: ORAL
     Route: 048
     Dates: start: 20020101, end: 20020101
  4. ATORVASTATIN (ATORVASTATIN) [Concomitant]
  5. CELECOXIB (CELECOXIB) [Concomitant]

REACTIONS (14)
  - ASTHENIA [None]
  - CLONIC CONVULSION [None]
  - CONDITION AGGRAVATED [None]
  - COORDINATION ABNORMAL [None]
  - DIFFICULTY IN WALKING [None]
  - DRUG INEFFECTIVE [None]
  - DYSKINESIA [None]
  - LUMBAR RADICULOPATHY [None]
  - MEMORY IMPAIRMENT [None]
  - MUSCLE SPASMS [None]
  - OVERDOSE [None]
  - SENSORY DISTURBANCE [None]
  - SPEECH DISORDER [None]
  - ULCER [None]
